FAERS Safety Report 8823588 (Version 3)
Quarter: 2013Q2

REPORT INFORMATION
  Report Type: Report from Study
  Country: JP (occurrence: JP)
  Receive Date: 20121003
  Receipt Date: 20130429
  Transmission Date: 20140414
  Serious: Yes (Hospitalization)
  Sender: FDA-Public Use
  Company Number: JP-VERTEX PHARMACEUTICAL INC.-2012-022093

PATIENT
  Age: 52 Year
  Sex: Female

DRUGS (43)
  1. VX-950 (TELAPREVIR) [Suspect]
     Indication: CHRONIC HEPATITIS C
     Dosage: 1500 MG, QD
     Route: 048
     Dates: start: 20120620, end: 20120720
  2. VX-950 (TELAPREVIR) [Suspect]
     Dosage: 750 MG, QD
     Route: 048
     Dates: start: 20120721, end: 20120721
  3. VX-950 (TELAPREVIR) [Suspect]
     Dosage: 1500 MG, QD
     Route: 048
     Dates: start: 20120722, end: 20120731
  4. VX-950 (TELAPREVIR) [Suspect]
     Dosage: 1000 MG, QD
     Route: 048
     Dates: start: 20120801, end: 20120807
  5. VX-950 (TELAPREVIR) [Suspect]
     Dosage: 1250 MG, QD
     Route: 048
     Dates: start: 20120808, end: 20120814
  6. VX-950 (TELAPREVIR) [Suspect]
     Dosage: 1500 MG, QD
     Route: 048
     Dates: start: 20120815, end: 20120821
  7. VX-950 (TELAPREVIR) [Suspect]
     Dosage: 1250 MG, QD
     Route: 048
     Dates: start: 20120822, end: 20120828
  8. VX-950 (TELAPREVIR) [Suspect]
     Dosage: 500 MG, QD
     Route: 048
     Dates: start: 20120829, end: 20120906
  9. VX-950 (TELAPREVIR) [Suspect]
     Dosage: 250 MG, QD
     Route: 048
     Dates: start: 20120907, end: 20120909
  10. VX-950 (TELAPREVIR) [Suspect]
     Dosage: 500 MG, QD
     Route: 048
     Dates: start: 20120910, end: 20120911
  11. VX-950 (TELAPREVIR) [Suspect]
     Dosage: 250 MG, QD
     Route: 048
     Dates: start: 20120912, end: 20120919
  12. REBETOL [Suspect]
     Indication: CHRONIC HEPATITIS C
     Dosage: 400 MG, QD
     Route: 048
     Dates: start: 20120620, end: 20120629
  13. REBETOL [Suspect]
     Dosage: 200 MG, QD
     Route: 048
     Dates: start: 20120630, end: 20120717
  14. REBETOL [Suspect]
     Dosage: 200 MG, QOD
     Route: 048
     Dates: start: 20120718, end: 20120821
  15. REBETOL [Suspect]
     Dosage: 200 MG, 2 DAYS OUT OF 3 DAYS
     Route: 048
     Dates: start: 20120822, end: 20120828
  16. REBETOL [Suspect]
     Dosage: 200 MG, QOD
     Route: 048
     Dates: start: 20120829, end: 20120918
  17. REBETOL [Suspect]
     Dosage: 200 MG, QD
     Route: 048
     Dates: start: 20120919, end: 20121002
  18. REBETOL [Suspect]
     Dosage: 400 MG, QD
     Route: 048
     Dates: start: 20121003, end: 20121016
  19. REBETOL [Suspect]
     Dosage: 200 ON ODD DAYS/ 400 MG ON EVEN DAYS
     Route: 048
     Dates: start: 20121017, end: 20121023
  20. REBETOL [Suspect]
     Dosage: 400 MG, QD
     Route: 048
     Dates: start: 20121024, end: 20121030
  21. REBETOL [Suspect]
     Dosage: 400 MG ON EVEN DAYS/600MG ON ODD DAYS
     Route: 048
     Dates: start: 20121031, end: 20121113
  22. REBETOL [Suspect]
     Dosage: 600 MG, QD
     Route: 048
     Dates: start: 20121114, end: 20121204
  23. REBETOL [Suspect]
     Dosage: 400 MG, QD
     Route: 048
     Dates: start: 20121205
  24. PEGINTRON [Suspect]
     Indication: CHRONIC HEPATITIS C
     Dosage: 1.1 ?G/KG, QW
     Route: 058
     Dates: start: 20120620, end: 20120717
  25. PEGINTRON [Suspect]
     Dosage: 1.2 ?G/KG, QW
     Route: 058
     Dates: start: 20120718, end: 20120828
  26. PEGINTRON [Suspect]
     Dosage: 1 ?G/KG, QW
     Route: 058
     Dates: start: 20120905, end: 20120911
  27. PEGINTRON [Suspect]
     Dosage: 1.1 ?G/KG, QW
     Route: 058
     Dates: start: 20120912, end: 20120918
  28. PEGINTRON [Suspect]
     Dosage: 1.2 ?G/KG, QW
     Route: 058
     Dates: start: 20120919, end: 20121205
  29. TALION [Concomitant]
     Dosage: 10 MG, QD
     Route: 048
     Dates: end: 20120814
  30. HIRUDOID [Concomitant]
     Dosage: UNK
     Route: 051
  31. FULMETA [Concomitant]
     Dosage: UNK
     Route: 061
  32. PARIET [Concomitant]
     Dosage: 10 MG, QD
     Route: 048
     Dates: start: 20120620, end: 20121127
  33. VONFENAC [Concomitant]
     Dosage: 1.25-25 MG
     Route: 054
     Dates: start: 20120620
  34. VONFENAC [Concomitant]
     Dosage: 1.25-25 MG
     Route: 054
     Dates: end: 20120624
  35. VONFENAC [Concomitant]
     Dosage: 1.25 MG, PRN
     Route: 054
     Dates: start: 20120625
  36. REBAMIPIDE [Concomitant]
     Dosage: 300 MG, QD
     Route: 048
     Dates: start: 20120620
  37. LOXONIN [Concomitant]
     Dosage: 60 MG, QD
     Route: 048
     Dates: start: 20120621
  38. PURSENNID [Concomitant]
     Dosage: 24 MG, QD
     Route: 048
     Dates: start: 20120621
  39. BUFFERIN [Concomitant]
     Dosage: 330 MG, QD
     Route: 048
     Dates: start: 20120718
  40. BUFFERIN [Concomitant]
     Dosage: 330 MG, UNK
     Route: 048
  41. URSO [Concomitant]
     Dosage: 600 MG, QD
     Route: 048
  42. A330 [Concomitant]
     Dosage: 330 MG, PRN
     Route: 048
  43. TAKEPRON [Concomitant]
     Dosage: 30 MG, QD
     Route: 048
     Dates: start: 20121128

REACTIONS (1)
  - Renal impairment [Recovered/Resolved]
